FAERS Safety Report 19815367 (Version 6)
Quarter: 2022Q3

REPORT INFORMATION
  Report Type: Spontaneous
  Country: GR (occurrence: GR)
  Receive Date: 20210910
  Receipt Date: 20220721
  Transmission Date: 20221027
  Serious: Yes (Other)
  Sender: FDA-Public Use
  Company Number: GR-PFIZER INC-202101084383

PATIENT
  Age: 80 Year
  Sex: Female
  Weight: 80 kg

DRUGS (12)
  1. AMLODIPINE BESYLATE\HYDROCHLOROTHIAZIDE\OLMESARTAN MEDOXOMIL [Suspect]
     Active Substance: AMLODIPINE BESYLATE\HYDROCHLOROTHIAZIDE\OLMESARTAN MEDOXOMIL
     Indication: Hypertension
     Dosage: 40MG/10MG/12.5MG (40MG/10MG/12.5MG, 1 IN 1 DAY)
     Route: 048
  2. AMLODIPINE\HYDROCHLOROTHIAZIDE\OLMESARTAN [Suspect]
     Active Substance: AMLODIPINE\HYDROCHLOROTHIAZIDE\OLMESARTAN
     Indication: Hypertension
     Dosage: 40MG/10MG/12.5MG (40MG/10MG/12.5MG, 1 IN 1 DAY)
     Route: 048
  3. OLMESARTAN MEDOXOMIL [Suspect]
     Active Substance: OLMESARTAN MEDOXOMIL
     Indication: Hypertension
     Dosage: UNK
     Route: 048
  4. XELJANZ [Suspect]
     Active Substance: TOFACITINIB CITRATE
     Indication: Rheumatoid arthritis
     Dosage: 5 MG, 0.5 DAY
     Route: 065
     Dates: start: 20210601, end: 20210820
  5. AMLODIPINE BESYLATE [Suspect]
     Active Substance: AMLODIPINE BESYLATE
     Indication: Hypertension
     Dosage: UNK
     Route: 048
  6. HYDROCHLOROTHIAZIDE [Suspect]
     Active Substance: HYDROCHLOROTHIAZIDE
     Indication: Hypertension
     Dosage: UNK
     Route: 048
  7. BINOSTO [Concomitant]
     Active Substance: ALENDRONATE SODIUM
     Indication: Osteoporosis
     Dosage: 70 MG, ONCE EVERY 1 WK
     Route: 048
     Dates: start: 2019
  8. CHOLECALCIFEROL [Concomitant]
     Active Substance: CHOLECALCIFEROL
     Indication: Osteoporosis
     Dosage: 10000 IU, QD
     Route: 048
     Dates: start: 2019
  9. MOXONIDINE [Concomitant]
     Active Substance: MOXONIDINE
     Indication: Hypertension
     Dosage: 0.3 MG, 0.5 DAY
     Route: 048
  10. NEBIVOLOL HYDROCHLORIDE [Concomitant]
     Active Substance: NEBIVOLOL HYDROCHLORIDE
     Indication: Hypertension
     Dosage: 5 MG, 0.5 DAY
     Route: 048
  11. BROMAZEPAM [Concomitant]
     Active Substance: BROMAZEPAM
     Indication: Stress
     Dosage: 1.5 MG, QD
     Route: 048
  12. LANSOPRAZOLE [Concomitant]
     Active Substance: LANSOPRAZOLE
     Indication: Duodenogastric reflux
     Dosage: 30 MG, QD
     Route: 048

REACTIONS (3)
  - Haematotoxicity [Recovered/Resolved]
  - Renal impairment [Recovered/Resolved]
  - Drug ineffective [Unknown]

NARRATIVE: CASE EVENT DATE: 20210820
